FAERS Safety Report 12176608 (Version 1)
Quarter: 2016Q1

REPORT INFORMATION
  Report Type: Spontaneous
  Country: US (occurrence: US)
  Receive Date: 20160314
  Receipt Date: 20160314
  Transmission Date: 20160526
  Serious: No
  Sender: FDA-Public Use
  Company Number: US-AKORN PHARMACEUTICALS-2015AKN00294

PATIENT
  Sex: Female
  Weight: 57.6 kg

DRUGS (2)
  1. MYORISAN [Suspect]
     Active Substance: ISOTRETINOIN
     Indication: ACNE CYSTIC
     Dosage: 40 MG, 5X/DAY
     Route: 048
     Dates: start: 20150417, end: 20150514
  2. MYORISAN [Suspect]
     Active Substance: ISOTRETINOIN
     Dosage: 80 MG, 2X/WEEK
     Route: 048
     Dates: start: 20150417, end: 20150514

REACTIONS (2)
  - Dry skin [Unknown]
  - Lip dry [Unknown]

NARRATIVE: CASE EVENT DATE: 2015
